FAERS Safety Report 20335658 (Version 1)
Quarter: 2022Q1

REPORT INFORMATION
  Report Type: Spontaneous
  Country: US (occurrence: US)
  Receive Date: 20220114
  Receipt Date: 20220114
  Transmission Date: 20220423
  Serious: Yes (Death, Hospitalization, Other)
  Sender: FDA-Public Use
  Company Number: US-AMGEN-USASP2022002151

PATIENT

DRUGS (5)
  1. RITUXIMAB [Suspect]
     Active Substance: RITUXIMAB
     Indication: Acquired haemophilia
     Dosage: UNK
     Route: 065
  2. CYCLOPHOSPHAMIDE [Concomitant]
     Active Substance: CYCLOPHOSPHAMIDE
  3. MYCOPHENOLATE MOFETIL [Concomitant]
     Active Substance: MYCOPHENOLATE MOFETIL
  4. DARATUMUMAB [Concomitant]
     Active Substance: DARATUMUMAB
  5. EMICIZUMAB [Concomitant]
     Active Substance: EMICIZUMAB

REACTIONS (16)
  - Death [Fatal]
  - Myocardial ischaemia [Unknown]
  - Unevaluable event [Unknown]
  - Haemarthrosis [Unknown]
  - Retroperitoneal haemorrhage [Unknown]
  - Gastrointestinal haemorrhage [Unknown]
  - Subdural haematoma [Unknown]
  - Deep vein thrombosis [Unknown]
  - Drug hypersensitivity [Unknown]
  - Hyperglycaemia [Unknown]
  - Therapy non-responder [Unknown]
  - Ecchymosis [Recovered/Resolved]
  - Embolism venous [Unknown]
  - Off label use [Unknown]
  - Haematuria [Unknown]
  - Soft tissue haemorrhage [Unknown]
